FAERS Safety Report 5983258-7 (Version None)
Quarter: 2008Q4

REPORT INFORMATION
  Report Type: 
  Country: None (occurrence: None)
  Receive Date: 20081208
  Receipt Date: 20080509
  Transmission Date: 20090506
  Serious: No
  Sender: FDA-Public Use
  Company Number: US-BAYER-200812238BCC

PATIENT
  Age: 66 Year
  Sex: Male
  Weight: 60 kg

DRUGS (2)
  1. ALEVE-D SINUS + COLD [Suspect]
     Indication: NASOPHARYNGITIS
     Dosage: AS USED: 1 DF  UNIT DOSE: 1 DF
     Dates: start: 20080507, end: 20080507
  2. ASPIRIN [Concomitant]

REACTIONS (2)
  - DYSURIA [None]
  - INSOMNIA [None]
